FAERS Safety Report 11619106 (Version 1)
Quarter: 2015Q4

REPORT INFORMATION
  Report Type: Spontaneous
  Country: US (occurrence: US)
  Receive Date: 20151012
  Receipt Date: 20151012
  Transmission Date: 20160304
  Serious: No
  Sender: FDA-Public Use
  Company Number: US-FRESENIUS KABI-FK201502619

PATIENT
  Age: 52 Year
  Sex: Female

DRUGS (1)
  1. DEXAMETHASONE SODIUM PHOSPHATE INJECTION, USP [Suspect]
     Active Substance: DEXAMETHASONE SODIUM PHOSPHATE
     Indication: EPICONDYLITIS
     Route: 061
     Dates: start: 20150601, end: 20150601

REACTIONS (2)
  - Off label use [Recovered/Resolved]
  - Dizziness [Recovered/Resolved]

NARRATIVE: CASE EVENT DATE: 20150601
